FAERS Safety Report 17878564 (Version 1)
Quarter: 2020Q2

REPORT INFORMATION
  Report Type: Spontaneous
  Country: DE (occurrence: DE)
  Receive Date: 20200610
  Receipt Date: 20200610
  Transmission Date: 20200714
  Serious: Yes (Hospitalization, Other)
  Sender: FDA-Public Use
  Company Number: DE-AUROBINDO-AUR-APL-2020-027963

PATIENT
  Age: 84 Year
  Sex: Female

DRUGS (2)
  1. TERIPARATIDE [Suspect]
     Active Substance: TERIPARATIDE
     Indication: OSTEOPOROSIS
     Dosage: UNK, ONCE A DAY (PEN, DISPOSABLE)
     Route: 058
     Dates: start: 20190328
  2. OXYCODONE [Suspect]
     Active Substance: OXYCODONE
     Indication: BACK PAIN
     Dosage: UNK
     Route: 065
     Dates: start: 20200330

REACTIONS (4)
  - Asthenia [Recovered/Resolved]
  - Renal failure [Recovered/Resolved]
  - Fluid intake reduced [Unknown]
  - Dehydration [Recovered/Resolved]
